FAERS Safety Report 5492045-8 (Version None)
Quarter: 2007Q4

REPORT INFORMATION
  Report Type: 
  Country: None (occurrence: None)
  Receive Date: 20071018
  Receipt Date: 20071018
  Transmission Date: 20080405
  Serious: Yes (Hospitalization)
  Sender: FDA-Public Use
  Company Number: None

PATIENT
  Age: 67 Year
  Sex: Male
  Weight: 89.3586 kg

DRUGS (1)
  1. OXILAN-350 [Suspect]
     Indication: CATHETERISATION CARDIAC
     Dosage: 150 ML ONCE INTRACORONA
     Route: 022
     Dates: start: 20071015, end: 20071015

REACTIONS (5)
  - COUGH [None]
  - NAUSEA [None]
  - PROCEDURAL COMPLICATION [None]
  - REACTION TO AZO-DYES [None]
  - VOMITING [None]
